FAERS Safety Report 5535441-2 (Version None)
Quarter: 2007Q4

REPORT INFORMATION
  Report Type: 
  Country: None (occurrence: None)
  Receive Date: 20071204
  Receipt Date: 20071204
  Transmission Date: 20080405
  Serious: Yes (Life-Threatening, Hospitalization, Other)
  Sender: FDA-Public Use
  Company Number: None

PATIENT
  Sex: Female
  Weight: 108.8633 kg

DRUGS (2)
  1. CYMBALTA [Suspect]
     Indication: ANXIETY
     Dates: start: 20070914, end: 20071014
  2. CYMBALTA [Suspect]
     Indication: DEPRESSION
     Dates: start: 20070914, end: 20071014

REACTIONS (5)
  - DRUG WITHDRAWAL SYNDROME [None]
  - HALLUCINATIONS, MIXED [None]
  - PARANOIA [None]
  - SUICIDAL IDEATION [None]
  - SUICIDE ATTEMPT [None]
